FAERS Safety Report 8042522-0 (Version None)
Quarter: 2012Q1

REPORT INFORMATION
  Report Type: 
  Country: None (occurrence: None)
  Receive Date: 20120112
  Receipt Date: 20120106
  Transmission Date: 20120608
  Serious: Yes (Hospitalization)
  Sender: FDA-Public Use
  Company Number: US-ABBOTT-12P-163-0890063-00

PATIENT
  Sex: Male
  Weight: 54.48 kg

DRUGS (2)
  1. CYMBALTA [Concomitant]
     Indication: PRODUCT USED FOR UNKNOWN INDICATION
  2. HUMIRA [Suspect]
     Indication: CROHN'S DISEASE
     Route: 058

REACTIONS (3)
  - RECTAL HAEMORRHAGE [None]
  - DEVICE MALFUNCTION [None]
  - GASTROINTESTINAL INFLAMMATION [None]
